FAERS Safety Report 21541227 (Version 3)
Quarter: 2023Q2

REPORT INFORMATION
  Report Type: Report from Study
  Country: BR (occurrence: BR)
  Receive Date: 20221102
  Receipt Date: 20230414
  Transmission Date: 20230721
  Serious: Yes (Other)
  Sender: FDA-Public Use
  Company Number: BR-JNJFOC-20221049763

PATIENT
  Sex: Male
  Weight: 80 kg

DRUGS (1)
  1. INFLIXIMAB [Suspect]
     Active Substance: INFLIXIMAB
     Indication: Rheumatoid arthritis
     Dosage: 5 TUBES FOR A TUBE OF SERUM, SECOND BY PATIENT
     Route: 041
     Dates: start: 20151015, end: 202103

REACTIONS (6)
  - Nephrolithiasis [Unknown]
  - Tachycardia [Unknown]
  - Drug ineffective [Unknown]
  - Adverse event [Unknown]
  - Hypersensitivity [Unknown]
  - Off label use [Unknown]
